FAERS Safety Report 7087925-6 (Version None)
Quarter: 2010Q4

REPORT INFORMATION
  Report Type: 
  Country: None (occurrence: None)
  Receive Date: 20101020
  Receipt Date: 20101008
  Transmission Date: 20110411
  Serious: Yes (Other)
  Sender: FDA-Public Use
  Company Number: AEUSA201000346

PATIENT
  Age: 83 Year
  Sex: Female
  Weight: 68.4932 kg

DRUGS (18)
  1. PROLASTIN-C [Suspect]
     Indication: ALPHA-1 ANTI-TRYPSIN DEFICIENCY
     Dosage: 60 MG; QW; IV
     Route: 042
     Dates: start: 20100501
  2. ALBUTEROL [Concomitant]
  3. PROVENTIL /00139501/ [Concomitant]
  4. INSULIN [Concomitant]
  5. OXYGEN [Concomitant]
  6. FUROSEMIDE [Concomitant]
  7. OXYBUTYNIN CHLORIDE [Concomitant]
  8. CITALOPRAM HYDROBROMIDE [Concomitant]
  9. AMLODIPINE BESYLATE [Concomitant]
  10. OMEPRAZOLE [Concomitant]
  11. TRAZODONE HCL [Concomitant]
  12. SINGULAIR [Concomitant]
  13. ARICEPT [Concomitant]
  14. PREDNISONE [Concomitant]
  15. CALTRATE D [Concomitant]
  16. COMBIVENT [Concomitant]
  17. SYMBICORT [Concomitant]
  18. SODIUM CHLORIDE [Concomitant]

REACTIONS (1)
  - VISUAL IMPAIRMENT [None]
